FAERS Safety Report 9669623 (Version 1)
Quarter: 2013Q4

REPORT INFORMATION
  Report Type: Spontaneous
  Country: CA (occurrence: None)
  Receive Date: 20131101
  Receipt Date: 20131101
  Transmission Date: 20140711
  Serious: Yes (Hospitalization)
  Sender: FDA-Public Use
  Company Number: 2013AP009434

PATIENT
  Age: 64 Year
  Sex: Female

DRUGS (13)
  1. VENLAFAXINE [Suspect]
  2. IRBESARTAN [Suspect]
  3. OMEPRAZOLE [Suspect]
  4. AMIODARONE [Suspect]
     Route: 041
  5. DOMPERIDONE [Suspect]
  6. DIGOXIN [Suspect]
  7. FUROSEMIDE [Suspect]
  8. METOLAZONE [Suspect]
  9. CITALOPRAM(CITALOPRAM) [Concomitant]
  10. GLYBURIDE)(GLIBENCLAMIDE) [Concomitant]
  11. LEVOTHYROXINE(LEVOTHROXINE) [Concomitant]
  12. LIPITOR(ATORVASTATIN CALCIUM) [Concomitant]
  13. METFORMIN [Suspect]

REACTIONS (7)
  - Electrocardiogram QT prolonged [None]
  - Torsade de pointes [None]
  - Tachycardia [None]
  - Loss of consciousness [None]
  - Dizziness [None]
  - Hypokalaemia [None]
  - Hypomagnesaemia [None]
